FAERS Safety Report 14917126 (Version 2)
Quarter: 2018Q4

REPORT INFORMATION
  Report Type: Report from Study
  Country: None (occurrence: CA)
  Receive Date: 20180521
  Receipt Date: 20181117
  Transmission Date: 20190204
  Serious: Yes (Other)
  Sender: FDA-Public Use
  Company Number: CA-ABBVIE-18K-028-2357306-00

PATIENT
  Age: 55 Year
  Sex: Female

DRUGS (2)
  1. HUMIRA [Suspect]
     Active Substance: ADALIMUMAB
     Indication: PSORIATIC ARTHROPATHY
     Route: 058
     Dates: start: 20170516, end: 201802
  2. HUMIRA [Suspect]
     Active Substance: ADALIMUMAB
     Route: 058
     Dates: start: 2018

REACTIONS (12)
  - Procedural pain [Not Recovered/Not Resolved]
  - Disturbance in attention [Not Recovered/Not Resolved]
  - Mobility decreased [Not Recovered/Not Resolved]
  - Procedural complication [Unknown]
  - Tearfulness [Unknown]
  - Bladder prolapse [Unknown]
  - Drug effect incomplete [Not Recovered/Not Resolved]
  - Hypophagia [Not Recovered/Not Resolved]
  - Post procedural complication [Not Recovered/Not Resolved]
  - Insomnia [Not Recovered/Not Resolved]
  - Memory impairment [Not Recovered/Not Resolved]
  - Bladder discomfort [Not Recovered/Not Resolved]

NARRATIVE: CASE EVENT DATE: 201712
